FAERS Safety Report 5768083-4 (Version None)
Quarter: 2008Q2

REPORT INFORMATION
  Report Type: 
  Country: None (occurrence: None)
  Receive Date: 20080612
  Receipt Date: 20070712
  Transmission Date: 20081010
  Serious: No
  Sender: FDA-Public Use
  Company Number: US-ASTRAZENECA-2007UW16351

PATIENT
  Age: 52 Year
  Sex: Female
  Weight: 68.9 kg

DRUGS (8)
  1. FASLODEX [Suspect]
     Indication: BREAST CANCER
  2. ZOMETA [Concomitant]
     Dates: end: 20070401
  3. COLAZAL [Concomitant]
  4. SYNTHROID [Concomitant]
  5. MULTI-VITAMIN [Concomitant]
  6. CALCIUM [Concomitant]
  7. ESTER C [Concomitant]
  8. PERCOCET [Concomitant]

REACTIONS (2)
  - ARTHRALGIA [None]
  - BONE PAIN [None]
